FAERS Safety Report 17423862 (Version 2)
Quarter: 2020Q1

REPORT INFORMATION
  Report Type: Spontaneous
  Country: US (occurrence: US)
  Receive Date: 20200217
  Receipt Date: 20200313
  Transmission Date: 20200409
  Serious: No
  Sender: FDA-Public Use
  Company Number: US-ELI_LILLY_AND_COMPANY-US202002004850

PATIENT
  Sex: Male

DRUGS (3)
  1. HUMATROPE [Suspect]
     Active Substance: SOMATROPIN
     Indication: HYPOPITUITARISM
     Dosage: 1.6 MG, 6 TIMES PER WEEK
     Route: 058
  2. HUMATROPE [Suspect]
     Active Substance: SOMATROPIN
     Indication: HYPOPITUITARISM
     Dosage: UNK UNK, UNKNOWN
     Route: 058
  3. HUMATROPE [Suspect]
     Active Substance: SOMATROPIN
     Indication: HYPOPITUITARISM
     Dosage: UNK UNK, UNKNOWN
     Route: 058

REACTIONS (2)
  - Off label use [Unknown]
  - Incorrect dose administered [Unknown]
